FAERS Safety Report 7611130-5 (Version None)
Quarter: 2011Q3

REPORT INFORMATION
  Report Type: 
  Country: None (occurrence: None)
  Receive Date: 20110707
  Receipt Date: 20110624
  Transmission Date: 20111222
  Serious: Yes (Other)
  Sender: FDA-Public Use
  Company Number: 2011SP029591

PATIENT
  Sex: Male

DRUGS (2)
  1. NOXAFIL [Suspect]
     Indication: PRODUCT USED FOR UNKNOWN INDICATION
  2. VFEND [Suspect]
     Indication: BRONCHOPULMONARY ASPERGILLOSIS
     Dosage: 6 MG/KG;BID;IV
     Route: 042

REACTIONS (2)
  - UNEVALUABLE EVENT [None]
  - HALLUCINATION, VISUAL [None]
